FAERS Safety Report 26169534 (Version 1)
Quarter: 2025Q4

REPORT INFORMATION
  Report Type: Report from Study
  Country: US (occurrence: US)
  Receive Date: 20251217
  Receipt Date: 20251217
  Transmission Date: 20260117
  Serious: Yes (Death)
  Sender: ROCHE
  Company Number: US-ROCHE-10000460870

PATIENT
  Age: 74 Year
  Sex: Female

DRUGS (4)
  1. XOLAIR PFS [Suspect]
     Active Substance: OMALIZUMAB
     Indication: Asthma
     Dosage: INJECT THE CONTENTS OF 1 DEVICE UNDER THE SKIN EVERY 4 WEEKS (TOTAL: 150MG EVERY 4 WEEKS)
     Route: 058
  2. XOLAIR PFS [Suspect]
     Active Substance: OMALIZUMAB
     Indication: Asthma
  3. XOLAIR PFS [Suspect]
     Active Substance: OMALIZUMAB
     Indication: Chronic obstructive pulmonary disease
  4. XOLAIR PFS [Suspect]
     Active Substance: OMALIZUMAB
     Indication: Immunology test abnormal

REACTIONS (1)
  - Death [Fatal]
